FAERS Safety Report 15319484 (Version 2)
Quarter: 2018Q3

REPORT INFORMATION
  Report Type: Spontaneous
  Country: PT (occurrence: PT)
  Receive Date: 20180827
  Receipt Date: 20180830
  Transmission Date: 20181010
  Serious: Yes (Other)
  Sender: FDA-Public Use
  Company Number: PT-TEVA-2018-PT-946971

PATIENT
  Age: 75 Year
  Sex: Male
  Weight: 65 kg

DRUGS (4)
  1. LEVOTHYROXINE SODIUM. [Concomitant]
     Active Substance: LEVOTHYROXINE SODIUM
     Indication: HYPOTHYROIDISM
     Dosage: 1 DOSAGE FORMS DAILY;
     Route: 065
  2. RAMIPRIL. [Concomitant]
     Active Substance: RAMIPRIL
     Indication: HYPERTENSION
     Dosage: 1 DOSAGE FORMS DAILY;
     Route: 065
  3. FLINDIX [Concomitant]
     Indication: MYOCARDIAL ISCHAEMIA
     Dosage: 1 DOSAGE FORMS DAILY;
     Route: 065
  4. ENTECAVIR TEVA [Suspect]
     Active Substance: ENTECAVIR
     Indication: HEPATITIS B
     Dosage: .5 MILLIGRAM DAILY; 0,5 MG/DIA
     Route: 048
     Dates: start: 20180424, end: 20180628

REACTIONS (6)
  - Mouth haemorrhage [Unknown]
  - Dyspepsia [Recovered/Resolved]
  - Epigastric discomfort [Recovered/Resolved]
  - Cough [Recovered/Resolved]
  - Abdominal pain upper [Recovered/Resolved]
  - Haematemesis [Recovered/Resolved]

NARRATIVE: CASE EVENT DATE: 20180502
